FAERS Safety Report 4537265-1 (Version None)
Quarter: 2004Q4

REPORT INFORMATION
  Report Type: 
  Country: None (occurrence: None)
  Receive Date: 20041221
  Receipt Date: 20041209
  Transmission Date: 20050328
  Serious: Yes (Hospitalization, Other)
  Sender: FDA-Public Use
  Company Number: 230228M04USA

PATIENT
  Age: 56 Year
  Sex: Female

DRUGS (6)
  1. REBIF [Suspect]
     Indication: MULTIPLE SCLEROSIS
     Dosage: 44 MCG, 3 IN 1 WEEKS, NOT REPORTED
     Dates: start: 20030101, end: 20041101
  2. ZANAFLEX [Concomitant]
  3. AMINOPYRIDINE (FAMPRIDINE) [Concomitant]
  4. PRAMIPEXOLE (PRAMIPEXOLE) [Concomitant]
  5. ESTROGEN (ESTROGEN NOS) [Concomitant]
  6. CLONAPIN (CLONAZEPAM) [Concomitant]

REACTIONS (2)
  - HEPATITIS ACUTE [None]
  - URINARY TRACT INFECTION [None]
